FAERS Safety Report 9726577 (Version 1)
Quarter: 2013Q4

REPORT INFORMATION
  Report Type: Spontaneous
  Country: CO (occurrence: CO)
  Receive Date: 20131203
  Receipt Date: 20131203
  Transmission Date: 20140711
  Serious: Yes (Death)
  Sender: FDA-Public Use
  Company Number: CO-BAYER-2013-145756

PATIENT
  Sex: Female
  Weight: 80 kg

DRUGS (1)
  1. ULTRAVIST? 300 [Suspect]
     Indication: COMPUTERISED TOMOGRAM
     Dosage: 80 ML, ONCE

REACTIONS (1)
  - Pleural effusion [Fatal]
